FAERS Safety Report 20978840 (Version 1)
Quarter: 2022Q2

REPORT INFORMATION
  Report Type: Spontaneous
  Country: US (occurrence: US)
  Receive Date: 20220619
  Receipt Date: 20220619
  Transmission Date: 20220720
  Serious: No
  Sender: FDA-Public Use
  Company Number: US-BRISTOL-MYERS SQUIBB COMPANY-2022-053566

PATIENT
  Age: 37 Year
  Sex: Female

DRUGS (1)
  1. REVLIMID [Suspect]
     Active Substance: LENALIDOMIDE
     Indication: Monoclonal gammopathy
     Dosage: FREQ: TAKE ONE CAPSULE BY MOUTH DAILY FOR 21 DAYS EVERY 28 DAY CYCLE
     Route: 048
     Dates: start: 20220315

REACTIONS (1)
  - Rash [Unknown]
